FAERS Safety Report 25153065 (Version 1)
Quarter: 2025Q2

REPORT INFORMATION
  Report Type: Spontaneous
  Country: FR (occurrence: FR)
  Receive Date: 20250403
  Receipt Date: 20250403
  Transmission Date: 20250716
  Serious: Yes (Other)
  Sender: CHEPLAPHARM
  Company Number: None

PATIENT
  Age: 42 Year
  Sex: Male

DRUGS (9)
  1. QUETIAPINE [Suspect]
     Active Substance: QUETIAPINE
     Route: 048
     Dates: start: 20250217
  2. QUETIAPINE [Suspect]
     Active Substance: QUETIAPINE
     Dosage: DAILY DOSE: 700 MILLIGRAM
     Route: 048
  3. COCAINE [Suspect]
     Active Substance: COCAINE
     Route: 045
     Dates: start: 20250217
  4. COCAINE [Suspect]
     Active Substance: COCAINE
  5. VALIUM [Suspect]
     Active Substance: DIAZEPAM
     Dosage: 60 MG PER EPISODE?DAILY DOSE: 60 MILLIGRAM
     Route: 048
     Dates: start: 20250217
  6. ATARAX [Suspect]
     Active Substance: HYDROXYZINE HYDROCHLORIDE
     Indication: Mixed anxiety and depressive disorder
     Route: 048
     Dates: start: 20250217
  7. ATARAX [Suspect]
     Active Substance: HYDROXYZINE HYDROCHLORIDE
     Indication: Mixed anxiety and depressive disorder
     Route: 048
  8. LOXAPINE [Concomitant]
     Active Substance: LOXAPINE
     Dosage: DAILY DOSE: 50 MILLIGRAM
  9. MELATONIN [Concomitant]
     Active Substance: MELATONIN

REACTIONS (8)
  - Near death experience [Recovered/Resolved]
  - Poisoning [Recovered/Resolved]
  - Substance use disorder [Not Recovered/Not Resolved]
  - Overdose [Unknown]
  - Palpitations [Recovered/Resolved]
  - Mydriasis [Unknown]
  - Dysarthria [Unknown]
  - Tremor [Unknown]

NARRATIVE: CASE EVENT DATE: 20250217
